FAERS Safety Report 10017751 (Version 1)
Quarter: 2014Q1

REPORT INFORMATION
  Report Type: Spontaneous
  Country: US (occurrence: US)
  Receive Date: 20140318
  Receipt Date: 20140318
  Transmission Date: 20141002
  Serious: Yes (Death, Hospitalization)
  Sender: FDA-Public Use
  Company Number: US-BRISTOL-MYERS SQUIBB COMPANY-18782995

PATIENT
  Age: 44 Year
  Sex: Male

DRUGS (1)
  1. ERBITUX [Suspect]
     Indication: COLON CANCER
     Dosage: ERBITUX 200MG/100ML: C1200248: EXP: 10/31/2015?100MG/50ML: C1200038: EXP2/28/2015
     Dates: start: 20130305

REACTIONS (2)
  - Death [Fatal]
  - Adverse event [Unknown]
